FAERS Safety Report 20530924 (Version 1)
Quarter: 2022Q1

REPORT INFORMATION
  Report Type: Spontaneous
  Country: US (occurrence: US)
  Receive Date: 20220301
  Receipt Date: 20220301
  Transmission Date: 20220423
  Serious: No
  Sender: FDA-Public Use
  Company Number: US-IGSA-BIG0014455

PATIENT
  Age: 62 Year
  Sex: Male
  Weight: 77 kg

DRUGS (6)
  1. PROLASTIN-C LIQUID [Suspect]
     Active Substance: .ALPHA.1-PROTEINASE INHIBITOR HUMAN
     Indication: Alpha-1 antitrypsin deficiency
     Dosage: 4620 MILLIGRAM, Q.WK.
     Route: 042
     Dates: start: 20210426
  2. PROLASTIN-C LIQUID [Suspect]
     Active Substance: .ALPHA.1-PROTEINASE INHIBITOR HUMAN
     Dosage: 4620 MILLIGRAM, Q.WK.
     Route: 042
     Dates: start: 20210503
  3. PROLASTIN-C LIQUID [Suspect]
     Active Substance: .ALPHA.1-PROTEINASE INHIBITOR HUMAN
     Dosage: 4620 MILLIGRAM, Q.WK.
     Route: 042
     Dates: start: 20210416
  4. SILDENAFIL [Concomitant]
     Active Substance: SILDENAFIL
  5. LISINOPRIL [Concomitant]
     Active Substance: LISINOPRIL
  6. ALFUZOSIN [Concomitant]
     Active Substance: ALFUZOSIN

REACTIONS (1)
  - Headache [Recovering/Resolving]

NARRATIVE: CASE EVENT DATE: 20210426
